FAERS Safety Report 7624010-6 (Version None)
Quarter: 2011Q3

REPORT INFORMATION
  Report Type: 
  Country: None (occurrence: None)
  Receive Date: 20110720
  Receipt Date: 20110708
  Transmission Date: 20111222
  Serious: Yes (Hospitalization)
  Sender: FDA-Public Use
  Company Number: US-PFIZER INC-2011154612

PATIENT
  Sex: Male

DRUGS (1)
  1. RELISTOR [Suspect]
     Indication: CONSTIPATION
     Dosage: 12 MG, 1X/DAY
     Dates: start: 20110601, end: 20110601

REACTIONS (1)
  - DIARRHOEA [None]
